FAERS Safety Report 9268398 (Version 1)
Quarter: 2013Q2

REPORT INFORMATION
  Report Type: Report from Study
  Country: US (occurrence: US)
  Receive Date: 20130502
  Receipt Date: 20130502
  Transmission Date: 20140414
  Serious: Yes (Hospitalization, Other)
  Sender: FDA-Public Use
  Company Number: US-US-EMD SERONO, INC.-7208176

PATIENT
  Age: 47 Year
  Sex: Male

DRUGS (1)
  1. REBIF [Suspect]
     Indication: MULTIPLE SCLEROSIS
     Route: 058
     Dates: start: 20090102

REACTIONS (7)
  - Femur fracture [Unknown]
  - Joint injury [Unknown]
  - Fall [Unknown]
  - Arthritis infective [Unknown]
  - Fat embolism [Unknown]
  - Multiple sclerosis relapse [Unknown]
  - Blood triglycerides increased [Not Recovered/Not Resolved]
